FAERS Safety Report 4575307-8 (Version None)
Quarter: 2005Q1

REPORT INFORMATION
  Report Type: 
  Country: None (occurrence: None)
  Receive Date: 20050209
  Receipt Date: 20050127
  Transmission Date: 20050727
  Serious: Yes (Hospitalization)
  Sender: FDA-Public Use
  Company Number: US-JNJFOC-20050200318

PATIENT
  Sex: Female
  Weight: 58.97 kg

DRUGS (17)
  1. REMICADE [Suspect]
     Indication: RHEUMATOID ARTHRITIS
     Route: 042
  2. METHOTREXATE [Concomitant]
  3. MYOCRYSINE [Concomitant]
  4. ARAVA [Concomitant]
  5. PREDNISONE [Concomitant]
  6. VIOXX [Concomitant]
  7. FOLIC ACID [Concomitant]
  8. CALCIUM+D [Concomitant]
  9. CALCIUM+D [Concomitant]
  10. MULTI-VITAMIN [Concomitant]
  11. MULTI-VITAMIN [Concomitant]
  12. MULTI-VITAMIN [Concomitant]
  13. MULTI-VITAMIN [Concomitant]
  14. MULTI-VITAMIN [Concomitant]
  15. MULTI-VITAMIN [Concomitant]
  16. MULTI-VITAMIN [Concomitant]
  17. MULTI-VITAMIN [Concomitant]

REACTIONS (4)
  - OVARIAN MASS [None]
  - OVARIAN TORSION [None]
  - PELVIC PAIN [None]
  - SALPINGITIS [None]
